FAERS Safety Report 9219678 (Version 2)
Quarter: 2014Q1

REPORT INFORMATION
  Report Type: Spontaneous
  Country: SV (occurrence: SV)
  Receive Date: 20130409
  Receipt Date: 20140204
  Transmission Date: 20141002
  Serious: Yes (Hospitalization)
  Sender: FDA-Public Use
  Company Number: SV-SANOFI-AVENTIS-2013SA036661

PATIENT
  Age: 64 Year
  Sex: Female
  Weight: 59.9 kg

DRUGS (6)
  1. LANTUS [Suspect]
     Indication: TYPE 2 DIABETES MELLITUS
     Route: 058
     Dates: start: 200703
  2. LANTUS [Suspect]
     Indication: TYPE 2 DIABETES MELLITUS
     Route: 058
  3. AMARYL [Concomitant]
     Indication: TYPE 2 DIABETES MELLITUS
  4. EXFORGE [Concomitant]
     Indication: HYPERTENSION
  5. CONCOR [Concomitant]
     Indication: HYPERTENSION
  6. ANTINEOPLASTIC AGENTS [Concomitant]

REACTIONS (2)
  - Adenocarcinoma [Recovered/Resolved]
  - Abdominal pain [Recovered/Resolved]
